FAERS Safety Report 6985147-8 (Version None)
Quarter: 2010Q3

REPORT INFORMATION
  Report Type: 
  Country: None (occurrence: None)
  Receive Date: 20100913
  Receipt Date: 20100901
  Transmission Date: 20110219
  Serious: Yes (Hospitalization, Other)
  Sender: FDA-Public Use
  Company Number: LEO-2010-00419

PATIENT
  Age: 75 Year
  Sex: Male

DRUGS (1)
  1. INNOHEP [Suspect]
     Dosage: (175 IU/KG), SUBCUTANEOUS
     Route: 058

REACTIONS (2)
  - HEPARIN-INDUCED THROMBOCYTOPENIA [None]
  - LEUKAEMIA [None]
